FAERS Safety Report 11756422 (Version 1)
Quarter: 2015Q4

REPORT INFORMATION
  Report Type: Spontaneous
  Country: US (occurrence: US)
  Receive Date: 20151119
  Receipt Date: 20151119
  Transmission Date: 20160304
  Serious: No
  Sender: FDA-Public Use
  Company Number: US-ALLERGAN-1504392US

PATIENT
  Sex: Male
  Weight: 79.37 kg

DRUGS (2)
  1. COMBIGAN [Suspect]
     Active Substance: BRIMONIDINE TARTRATE\TIMOLOL MALEATE
     Indication: INTRAOCULAR PRESSURE INCREASED
     Dosage: 1 DROP EACH EYE 2 TIMES DAILY
     Route: 047
     Dates: start: 201411
  2. COMBIGAN [Suspect]
     Active Substance: BRIMONIDINE TARTRATE\TIMOLOL MALEATE
     Dosage: 1 DROP EACH EYE 2 TIMES DAILY
     Route: 047
     Dates: start: 201411

REACTIONS (2)
  - Vision blurred [Recovered/Resolved]
  - Instillation site pain [Recovered/Resolved]
